FAERS Safety Report 18386167 (Version 2)
Quarter: 2020Q4

REPORT INFORMATION
  Report Type: Spontaneous
  Country: US (occurrence: US)
  Receive Date: 20201015
  Receipt Date: 20201022
  Transmission Date: 20210114
  Serious: Yes (Other)
  Sender: FDA-Public Use
  Company Number: US-PFIZER INC-2020398995

PATIENT
  Age: 65 Year
  Sex: Female

DRUGS (2)
  1. PREGABALIN. [Suspect]
     Active Substance: PREGABALIN
     Indication: FIBROMYALGIA
     Dosage: 150 MG
  2. PREGABALIN. [Suspect]
     Active Substance: PREGABALIN
     Dosage: 200 MG

REACTIONS (1)
  - Respiratory failure [Unknown]
